FAERS Safety Report 24994013 (Version 1)
Quarter: 2025Q1

REPORT INFORMATION
  Report Type: Spontaneous
  Country: US (occurrence: US)
  Receive Date: 20250221
  Receipt Date: 20250221
  Transmission Date: 20250409
  Serious: No
  Sender: BRISTOL-MYERS SQUIBB COMPANY
  Company Number: US-BRISTOL-MYERS SQUIBB COMPANY-2025-024398

PATIENT
  Age: 79 Year
  Sex: Male

DRUGS (2)
  1. REVLIMID [Suspect]
     Active Substance: LENALIDOMIDE
     Indication: Plasma cell myeloma
     Dosage: STRENGTH- 15MG
     Route: 048
     Dates: start: 20241218
  2. REVLIMID [Suspect]
     Active Substance: LENALIDOMIDE
     Indication: Bone disorder
     Route: 048
     Dates: start: 20241218

REACTIONS (4)
  - Abdominal pain upper [Unknown]
  - Illness [Unknown]
  - Chest pain [Unknown]
  - Off label use [Unknown]
